FAERS Safety Report 5782852-6 (Version None)
Quarter: 2008Q2

REPORT INFORMATION
  Report Type: 
  Country: None (occurrence: None)
  Receive Date: 20080619
  Receipt Date: 20080619
  Transmission Date: 20081010
  Serious: Yes (Other)
  Sender: FDA-Public Use
  Company Number: None

PATIENT
  Age: 40 Year
  Sex: Female
  Weight: 72.5755 kg

DRUGS (2)
  1. RHOGAM [Suspect]
     Indication: PREGNANCY
     Dates: start: 20070409, end: 20070409
  2. RHOGAM [Suspect]
     Indication: RHESUS ANTIBODIES NEGATIVE
     Dates: start: 20070409, end: 20070409

REACTIONS (10)
  - DIZZINESS [None]
  - DYSPNOEA [None]
  - DYSSTASIA [None]
  - FEELING ABNORMAL [None]
  - GAIT DISTURBANCE [None]
  - HYPOTENSION [None]
  - MOVEMENT DISORDER [None]
  - PRESYNCOPE [None]
  - SENSATION OF HEAVINESS [None]
  - VISUAL DISTURBANCE [None]
